FAERS Safety Report 4310827-2 (Version None)
Quarter: 2004Q1

REPORT INFORMATION
  Report Type: 
  Country: None (occurrence: None)
  Receive Date: 20040302
  Receipt Date: 20040216
  Transmission Date: 20041129
  Serious: Yes (Other)
  Sender: FDA-Public Use
  Company Number: FR-SHR-04-021547

PATIENT
  Age: 45 Year
  Sex: Female

DRUGS (1)
  1. BETAFERON (INTERFERON BETA - 1B) INJECTION, 250UG [Suspect]
     Indication: MULTIPLE SCLEROSIS
     Dosage: 250 UG, EVERY 2 D, SUBCUTANEOUS
     Route: 058

REACTIONS (1)
  - DIABETES MELLITUS INADEQUATE CONTROL [None]
